FAERS Safety Report 5684013-8 (Version None)
Quarter: 2008Q1

REPORT INFORMATION
  Report Type: 
  Country: None (occurrence: None)
  Receive Date: 20080328
  Receipt Date: 20080325
  Transmission Date: 20080703
  Serious: Yes (Hospitalization, Other)
  Sender: FDA-Public Use
  Company Number: US-ASTRAZENECA-2008UW04575

PATIENT
  Age: 56 Year
  Sex: Female
  Weight: 52.6 kg

DRUGS (7)
  1. SYMBICORT [Suspect]
     Indication: BRONCHIECTASIS
     Dosage: 160/4.5 UG TWO INHALATIONS BID
     Route: 055
     Dates: start: 20080301, end: 20080304
  2. SYMBICORT [Suspect]
     Indication: WHEEZING
     Dosage: 160/4.5 UG TWO INHALATIONS BID
     Route: 055
     Dates: start: 20080301, end: 20080304
  3. ACTONEL [Concomitant]
  4. CALCIUM WITH VITAMIN D [Concomitant]
  5. FISH OIL [Concomitant]
  6. ASPIRIN [Concomitant]
  7. WELLBUTRIN [Concomitant]

REACTIONS (5)
  - BLOOD CREATINE PHOSPHOKINASE INCREASED [None]
  - MUSCLE CONTRACTIONS INVOLUNTARY [None]
  - MUSCLE CONTRACTURE [None]
  - MUSCLE SPASMS [None]
  - PAIN [None]
